FAERS Safety Report 7996060-1 (Version None)
Quarter: 2011Q4

REPORT INFORMATION
  Report Type: 
  Country: None (occurrence: None)
  Receive Date: 20111220
  Receipt Date: 20111209
  Transmission Date: 20120403
  Serious: Yes (Hospitalization)
  Sender: FDA-Public Use
  Company Number: PHHY2011JP108744

PATIENT
  Sex: Female

DRUGS (19)
  1. DEXALTIN [Concomitant]
  2. TEGRETOL [Suspect]
     Indication: DEPRESSION
     Dosage: 200 MG, DAILY
     Route: 048
     Dates: start: 20110830
  3. MUCOSTA [Concomitant]
     Dosage: 100 MG, UNK
     Route: 048
  4. GASMOTIN [Concomitant]
     Dosage: 15 MG, UNK
     Route: 048
  5. PZC [Concomitant]
     Dosage: 6 MG, UNK
     Route: 048
  6. CETIRIZINE HCL [Concomitant]
     Dosage: 10 MG, UNK
     Route: 048
  7. DEPAKENE [Concomitant]
     Dosage: 1200 MG, UNK
     Route: 048
  8. MIGSIS [Concomitant]
     Dosage: 10 MG, UNK
     Route: 048
  9. CYTOTEC [Concomitant]
     Route: 048
  10. REMERON [Concomitant]
     Dosage: 135 MG, UNK
     Route: 048
  11. WAPLON [Concomitant]
     Route: 062
  12. GARENOXACIN MESYLATE [Concomitant]
     Dosage: 400 MG, UNK
     Route: 048
  13. LENDORMIN [Concomitant]
     Route: 048
  14. VOLTAREN [Concomitant]
     Dosage: 25 MG, UNK
     Route: 048
  15. ACETAMINOPHEN [Concomitant]
     Dosage: 900 MG, UNK
     Route: 048
  16. EMPYNASE [Concomitant]
     Dosage: 54000 IU, UNK
     Route: 048
  17. TRAZODONE HYDROCHLORIDE [Concomitant]
     Dosage: 200 MG, UNK
     Route: 048
  18. ADVAIR DISKUS 100/50 [Concomitant]
  19. LOXONIN [Concomitant]
     Route: 048

REACTIONS (12)
  - CORNEAL DISORDER [None]
  - LYMPHOCYTE STIMULATION TEST POSITIVE [None]
  - HYPERTHERMIA [None]
  - RASH [None]
  - HEADACHE [None]
  - WHITE BLOOD CELL COUNT INCREASED [None]
  - PYREXIA [None]
  - VISION BLURRED [None]
  - KAPOSI'S VARICELLIFORM ERUPTION [None]
  - STEVENS-JOHNSON SYNDROME [None]
  - ENANTHEMA [None]
  - CORNEAL EROSION [None]
